FAERS Safety Report 17502864 (Version 1)
Quarter: 2020Q1

REPORT INFORMATION
  Report Type: Spontaneous
  Country: US (occurrence: US)
  Receive Date: 20200225
  Receipt Date: 20200225
  Transmission Date: 20200409
  Serious: Yes (Other)
  Sender: FDA-Public Use
  Company Number: None

PATIENT
  Sex: Female

DRUGS (14)
  1. TOUJEO SOLO [Concomitant]
  2. NOVOLOG [Concomitant]
     Active Substance: INSULIN ASPART
  3. RAMIPRIL. [Concomitant]
     Active Substance: RAMIPRIL
  4. OCALIVA [Suspect]
     Active Substance: OBETICHOLIC ACID
     Indication: PRIMARY BILIARY CHOLANGITIS
     Route: 048
     Dates: start: 20180919
  5. AUGMENTIN [Concomitant]
     Active Substance: AMOXICILLIN\CLAVULANATE POTASSIUM
  6. EMGALITY [Concomitant]
     Active Substance: GALCANEZUMAB-GNLM
  7. LEVOTHYROXIN [Concomitant]
     Active Substance: LEVOTHYROXINE
  8. PREMARIN [Concomitant]
     Active Substance: ESTROGENS, CONJUGATED
  9. VENLAFAXINE [Concomitant]
     Active Substance: VENLAFAXINE HYDROCHLORIDE
  10. HYOSCYAMINE SUB [Concomitant]
     Active Substance: HYOSCYAMINE
  11. AMITRIPTYLIN [Concomitant]
     Active Substance: AMITRIPTYLINE
  12. CHLORHEX GLU SOL [Concomitant]
  13. COLESVELAM [Concomitant]
  14. NORTRIPTYLIN [Concomitant]
     Active Substance: NORTRIPTYLINE

REACTIONS (1)
  - Pruritus [None]
